FAERS Safety Report 23234467 (Version 1)
Quarter: 2023Q4

REPORT INFORMATION
  Report Type: Spontaneous
  Country: US (occurrence: None)
  Receive Date: 20231127
  Receipt Date: 20231127
  Transmission Date: 20240109
  Serious: No
  Sender: FDA-Public Use
  Company Number: None

PATIENT
  Age: 59 Year
  Sex: Female

DRUGS (1)
  1. TALTZ [Suspect]
     Active Substance: IXEKIZUMAB
     Indication: Psoriasis
     Dosage: OTHER QUANTITY : 160MG (2 SYRINGS) ;?FREQUENCY : AS DIRECTED;?
     Route: 058
     Dates: start: 202211

REACTIONS (2)
  - Malaise [None]
  - Intentional dose omission [None]
